FAERS Safety Report 15233971 (Version 1)
Quarter: 2018Q3

REPORT INFORMATION
  Report Type: Spontaneous
  Country: US (occurrence: US)
  Receive Date: 20180709
  Receipt Date: 20180709
  Transmission Date: 20181010
  Serious: No
  Sender: FDA-Public Use
  Company Number: None

PATIENT
  Age: 83 Year
  Sex: Female
  Weight: 51.71 kg

DRUGS (1)
  1. PHENOBARBITAL. [Suspect]
     Active Substance: PHENOBARBITAL
     Indication: SEIZURE
     Dosage: 5 PILLS 2 MORNING 2 @ NIGHT
     Dates: start: 20180620

REACTIONS (4)
  - Asthenia [None]
  - Vomiting [None]
  - Diarrhoea [None]
  - Throat irritation [None]
